FAERS Safety Report 6516425-4 (Version None)
Quarter: 2009Q4

REPORT INFORMATION
  Report Type: 
  Country: None (occurrence: None)
  Receive Date: 20091223
  Receipt Date: 20091215
  Transmission Date: 20100525
  Serious: Yes (Hospitalization)
  Sender: FDA-Public Use
  Company Number: B0617220A

PATIENT
  Sex: Male
  Weight: 65.9 kg

DRUGS (9)
  1. PAZOPANIB [Suspect]
     Indication: NEOPLASM
     Dosage: 800MG CYCLIC
     Route: 048
     Dates: start: 20091124
  2. EPIRUBICIN [Suspect]
     Indication: NEOPLASM
     Dosage: 90MGM2 CYCLIC
     Route: 048
     Dates: start: 20091111
  3. DURAGESIC-100 [Concomitant]
     Dosage: 25GH EVERY 3 DAYS
     Route: 058
     Dates: start: 20091210
  4. MORPHINE [Concomitant]
     Route: 048
     Dates: start: 20091102
  5. CODAFALGAN [Concomitant]
     Dosage: 1G THREE TIMES PER DAY
     Route: 048
     Dates: start: 20090821
  6. UNKNOWN DRUG [Concomitant]
     Dosage: 1MG FOUR TIMES PER DAY
     Route: 048
     Dates: start: 20090729
  7. LAXOBERON [Concomitant]
     Dosage: 20U TWICE PER DAY
     Route: 048
     Dates: start: 20090820
  8. HALDOL [Concomitant]
     Dosage: 5U THREE TIMES PER DAY
     Route: 048
     Dates: start: 20091210
  9. FLECTOR [Concomitant]
     Route: 058
     Dates: start: 20091102

REACTIONS (5)
  - DEHYDRATION [None]
  - DYSPHAGIA [None]
  - MUCOSAL INFLAMMATION [None]
  - NEUTROPENIA [None]
  - OROPHARYNGEAL PAIN [None]
